FAERS Safety Report 7304449-9 (Version None)
Quarter: 2011Q1

REPORT INFORMATION
  Report Type: 
  Country: None (occurrence: None)
  Receive Date: 20110221
  Receipt Date: 20110210
  Transmission Date: 20110831
  Serious: Yes (Other)
  Sender: FDA-Public Use
  Company Number: US-ASTRAZENECA-2009SE05466

PATIENT
  Age: 62 Year
  Sex: Female
  Weight: 90.7 kg

DRUGS (5)
  1. ZESTRIL [Suspect]
     Route: 048
     Dates: start: 20091210
  2. ZESTRIL [Suspect]
     Route: 048
     Dates: start: 20010101
  3. NORVASC [Concomitant]
  4. ZESTRIL [Suspect]
     Route: 048
     Dates: start: 20091210
  5. ZESTRIL [Suspect]
     Indication: HYPERTENSION
     Route: 048
     Dates: start: 19990101

REACTIONS (9)
  - NASOPHARYNGITIS [None]
  - MALAISE [None]
  - HEADACHE [None]
  - DIZZINESS [None]
  - NAUSEA [None]
  - SKIN CANCER [None]
  - LARYNGITIS [None]
  - IMPAIRED WORK ABILITY [None]
  - FATIGUE [None]
